FAERS Safety Report 6642346-2 (Version None)
Quarter: 2010Q1

REPORT INFORMATION
  Report Type: 
  Country: None (occurrence: None)
  Receive Date: 20100319
  Receipt Date: 20100312
  Transmission Date: 20100710
  Serious: Yes (Life-Threatening)
  Sender: FDA-Public Use
  Company Number: JP-ROCHE-685610

PATIENT
  Sex: Male
  Weight: 48 kg

DRUGS (5)
  1. TAMIFLU [Suspect]
     Indication: INFLUENZA
     Route: 048
     Dates: start: 20100206, end: 20100208
  2. VACCINES [Suspect]
     Indication: ANTIVIRAL PROPHYLAXIS
     Route: 058
     Dates: start: 20100205, end: 20100205
  3. BASEN [Concomitant]
     Route: 048
     Dates: start: 20081031, end: 20100208
  4. LENDORMIN [Concomitant]
     Route: 048
     Dates: start: 20040723, end: 20100208
  5. MAGMITT [Concomitant]
     Route: 048
     Dates: start: 20091120, end: 20100208

REACTIONS (1)
  - LIVER DISORDER [None]
